FAERS Safety Report 5717551-X (Version None)
Quarter: 2008Q2

REPORT INFORMATION
  Report Type: 
  Country: None (occurrence: None)
  Receive Date: 20080425
  Receipt Date: 20080411
  Transmission Date: 20081010
  Serious: Yes (Hospitalization)
  Sender: FDA-Public Use
  Company Number: FR-JNJFOC-20080405300

PATIENT
  Sex: Female

DRUGS (9)
  1. ACETAMINOPHEN AND TRAMADOL HCL [Suspect]
     Indication: INFLUENZA
     Route: 048
  2. KETOPROFEN [Suspect]
     Indication: INFLUENZA
     Route: 048
  3. CLARITHROMYCIN [Suspect]
     Indication: TONSILLITIS
     Route: 048
  4. AERIUS [Suspect]
     Indication: RASH
     Route: 048
  5. ORBENINE [Suspect]
     Indication: RASH
     Route: 048
  6. PREDNISONE [Suspect]
     Indication: DRUG USE FOR UNKNOWN INDICATION
     Route: 048
  7. PYOSTACINE [Suspect]
     Indication: DRUG USE FOR UNKNOWN INDICATION
     Dosage: 2 UNITS / DAY
     Route: 048
  8. CELESTONE [Suspect]
     Indication: RASH
     Route: 048
  9. VOLTAREN [Suspect]
     Indication: PAIN
     Route: 048

REACTIONS (6)
  - ARTHRALGIA [None]
  - DRUG HYPERSENSITIVITY [None]
  - PYREXIA [None]
  - RASH MACULO-PAPULAR [None]
  - SCAR [None]
  - VIRAL INFECTION [None]
